FAERS Safety Report 5318341-2 (Version None)
Quarter: 2007Q2

REPORT INFORMATION
  Report Type: 
  Country: None (occurrence: None)
  Receive Date: 20070507
  Receipt Date: 20070425
  Transmission Date: 20071010
  Serious: Yes (Other)
  Sender: FDA-Public Use
  Company Number: BR-PFIZER INC-2007034562

PATIENT
  Sex: Female
  Weight: 56 kg

DRUGS (3)
  1. DEPO-PROVERA [Suspect]
     Indication: MENORRHAGIA
     Route: 030
     Dates: start: 20070424, end: 20070424
  2. CAPTOPRIL [Concomitant]
     Indication: HYPERTENSION
  3. AMITRIPTYLINE HCL [Concomitant]
     Indication: DEPRESSION

REACTIONS (2)
  - MENORRHAGIA [None]
  - UTERINE LEIOMYOMA [None]
